FAERS Safety Report 5300847-3 (Version None)
Quarter: 2007Q2

REPORT INFORMATION
  Report Type: 
  Country: None (occurrence: None)
  Receive Date: 20070411
  Receipt Date: 20070327
  Transmission Date: 20071010
  Serious: Yes (Hospitalization)
  Sender: FDA-Public Use
  Company Number: FACT0700089

PATIENT
  Sex: Female

DRUGS (1)
  1. FACTIVE (GEMIFLOXACINE MESYLATE) TABLET, 320MG [Suspect]
     Indication: RESPIRATORY TRACT INFECTION BACTERIAL

REACTIONS (1)
  - HYPERSENSITIVITY [None]
